FAERS Safety Report 20668177 (Version 2)
Quarter: 2022Q2

REPORT INFORMATION
  Report Type: Report from Study
  Country: EG (occurrence: EG)
  Receive Date: 20220404
  Receipt Date: 20220406
  Transmission Date: 20220721
  Serious: Yes (Other)
  Sender: FDA-Public Use
  Company Number: EG-NOVARTISPH-NVSC2022EG072971

PATIENT
  Age: 0 Year
  Sex: Male

DRUGS (3)
  1. GLIVEC [Suspect]
     Active Substance: IMATINIB MESYLATE
     Indication: Foetal exposure during pregnancy
     Dosage: 1 DOSAGE FORM, QD (1-1 PER DAY)
     Route: 064
     Dates: start: 2012, end: 202103
  2. SPRYCEL [Suspect]
     Active Substance: DASATINIB
     Indication: Foetal exposure during pregnancy
     Dosage: 2 DOSAGE FORM, QD
     Route: 048
     Dates: start: 202102
  3. UNSPECIFIED INGREDIENT [Concomitant]
     Active Substance: UNSPECIFIED INGREDIENT
     Indication: Foetal exposure during pregnancy
     Dosage: UNK
     Route: 065

REACTIONS (9)
  - Low birth weight baby [Recovered/Resolved]
  - Staphylococcal infection [Recovered/Resolved]
  - Arterial occlusive disease [Recovered/Resolved]
  - Jaundice neonatal [Recovered/Resolved]
  - White blood cell count decreased [Recovered/Resolved]
  - Red blood cell count increased [Recovered/Resolved]
  - Weight decreased [Not Recovered/Not Resolved]
  - Kawasaki^s disease [Recovering/Resolving]
  - Epistaxis [Recovered/Resolved]

NARRATIVE: CASE EVENT DATE: 20140904
